FAERS Safety Report 23037504 (Version 1)
Quarter: 2023Q4

REPORT INFORMATION
  Report Type: Spontaneous
  Country: US (occurrence: None)
  Receive Date: 20231005
  Receipt Date: 20231005
  Transmission Date: 20240110
  Serious: Yes (Disabling)
  Sender: FDA-Public Use
  Company Number: None

PATIENT
  Age: 49 Year
  Sex: Male
  Weight: 108 kg

DRUGS (5)
  1. GILLETTE CLEAR PLUS DRI-TECH UNSCENTED [Suspect]
     Active Substance: ALUMINUM ZIRCONIUM OCTACHLOROHYDREX GLY
     Indication: Hyperhidrosis
  2. MELOXICAM [Concomitant]
     Active Substance: MELOXICAM
  3. mega men multivitamins [Concomitant]
  4. FISH OIL [Concomitant]
     Active Substance: FISH OIL
  5. glucosamine CHONDROITN [Concomitant]

REACTIONS (12)
  - Product complaint [None]
  - Application site irritation [None]
  - Application site erythema [None]
  - Application site pruritus [None]
  - Application site pain [None]
  - Application site reaction [None]
  - Discomfort [None]
  - Emotional distress [None]
  - Scar [None]
  - Pain [None]
  - Emotional distress [None]
  - Economic problem [None]

NARRATIVE: CASE EVENT DATE: 20230630
